FAERS Safety Report 5623231-1 (Version None)
Quarter: 2008Q1

REPORT INFORMATION
  Report Type: 
  Country: None (occurrence: None)
  Receive Date: 20080212
  Receipt Date: 20080205
  Transmission Date: 20080703
  Serious: Yes (Other)
  Sender: FDA-Public Use
  Company Number: US-TYCO HEALTHCARE/MALLINCKRODT-T200800132

PATIENT

DRUGS (1)
  1. OPTIRAY 300 [Suspect]

REACTIONS (3)
  - DYSPHAGIA [None]
  - DYSPNOEA [None]
  - THROAT TIGHTNESS [None]
